FAERS Safety Report 9031116 (Version 2)
Quarter: 2013Q1

REPORT INFORMATION
  Report Type: Spontaneous
  Country: BR (occurrence: BR)
  Receive Date: 20130123
  Receipt Date: 20130307
  Transmission Date: 20140127
  Serious: Yes (Other)
  Sender: FDA-Public Use
  Company Number: BR-ASTRAZENECA-2013SE04124

PATIENT
  Age: 64 Year
  Sex: Female
  Weight: 62 kg

DRUGS (2)
  1. VANNAIR [Suspect]
     Indication: CHRONIC OBSTRUCTIVE PULMONARY DISEASE
     Dosage: 160/4.5 UG THREE TIMES A DAY
     Route: 055
     Dates: start: 201211, end: 201212
  2. VANNAIR [Suspect]
     Indication: CHRONIC OBSTRUCTIVE PULMONARY DISEASE
     Dosage: 160/4.5 UG SIX TIMES A DAY
     Route: 055
     Dates: start: 201212

REACTIONS (3)
  - Tuberculosis [Recovering/Resolving]
  - Dyspnoea [Unknown]
  - Off label use [Not Recovered/Not Resolved]
